FAERS Safety Report 4860559-7 (Version None)
Quarter: 2005Q4

REPORT INFORMATION
  Report Type: 
  Country: None (occurrence: None)
  Receive Date: 20051216
  Receipt Date: 20051130
  Transmission Date: 20060501
  Serious: Yes (Hospitalization)
  Sender: FDA-Public Use
  Company Number: 200511IM000745

PATIENT
  Age: 48 Year
  Sex: Female
  Weight: 61.6892 kg

DRUGS (8)
  1. INFERGEN [Suspect]
     Indication: HEPATITIS C
     Dosage: SEE IMAGE
     Route: 058
     Dates: start: 20041109, end: 20050427
  2. INFERGEN [Suspect]
     Indication: HEPATITIS C
     Dosage: SEE IMAGE
     Route: 058
     Dates: start: 20050503, end: 20050922
  3. INFERGEN [Suspect]
     Indication: HEPATITIS C
     Dosage: SEE IMAGE
     Route: 058
     Dates: start: 20050923, end: 20051102
  4. RIBAVIRIN [Concomitant]
  5. URSO [Concomitant]
  6. NEXIUM [Concomitant]
  7. TYLENOL [Concomitant]
  8. TEMAZEPAM [Concomitant]

REACTIONS (9)
  - ANAEMIA [None]
  - ERYTHEMA [None]
  - INDURATION [None]
  - INJECTION SITE CELLULITIS [None]
  - INJECTION SITE INFLAMMATION [None]
  - PLATELET COUNT DECREASED [None]
  - SKIN LESION [None]
  - TENDERNESS [None]
  - WRONG TECHNIQUE IN DRUG USAGE PROCESS [None]
